FAERS Safety Report 17888586 (Version 2)
Quarter: 2020Q2

REPORT INFORMATION
  Report Type: Spontaneous
  Country: US (occurrence: US)
  Receive Date: 20200612
  Receipt Date: 20200617
  Transmission Date: 20200714
  Serious: No
  Sender: FDA-Public Use
  Company Number: US-ASTRAZENECA-2020SE66010

PATIENT
  Sex: Male
  Weight: 158.8 kg

DRUGS (6)
  1. BYDUREON BCISE [Suspect]
     Active Substance: EXENATIDE
     Indication: TYPE 2 DIABETES MELLITUS
     Route: 058
     Dates: start: 201912
  2. GABAPENTIN. [Concomitant]
     Active Substance: GABAPENTIN
  3. NOVA N [Concomitant]
  4. FISH OIL [Concomitant]
     Active Substance: FISH OIL
  5. BABY ASPIRIN [Concomitant]
     Active Substance: ASPIRIN
  6. LOSARTAN. [Concomitant]
     Active Substance: LOSARTAN

REACTIONS (8)
  - Circumstance or information capable of leading to medication error [Unknown]
  - Intentional product misuse [Unknown]
  - Wrong technique in device usage process [Unknown]
  - Device delivery system issue [Unknown]
  - Injection site mass [Unknown]
  - Abdominal pain upper [Unknown]
  - Device leakage [Unknown]
  - Nausea [Unknown]
